FAERS Safety Report 4418060-0 (Version None)
Quarter: 2004Q3

REPORT INFORMATION
  Report Type: 
  Country: None (occurrence: None)
  Receive Date: 20040803
  Receipt Date: 20040720
  Transmission Date: 20050211
  Serious: Yes (Other)
  Sender: FDA-Public Use
  Company Number: US-JNJFOC-20040608128

PATIENT
  Age: 57 Year
  Sex: Male
  Weight: 104.3273 kg

DRUGS (13)
  1. REMICADE [Suspect]
     Indication: CROHN'S DISEASE
     Dosage: 600 MG, INTRAVENOUS
     Route: 042
     Dates: start: 20031201
  2. CRESTOR (ALL OTHER THERAPEUTIC PRODUCTS) [Concomitant]
  3. ALTACE [Concomitant]
  4. VERAPAMIL [Concomitant]
  5. PLAVIX [Concomitant]
  6. FOLIC ACID [Concomitant]
  7. ACETYLSALICYLIC ACID SRT [Concomitant]
  8. PREDNISONE [Concomitant]
  9. IMMURAN (AZATHIOPRINE) [Concomitant]
  10. NEXIUM [Concomitant]
  11. WELBUTRIN (BUPROPION HYDROCHLORIDE) [Concomitant]
  12. VITAMIN B6 [Concomitant]
  13. VITAMIN B12 [Concomitant]

REACTIONS (5)
  - OROPHARYNGEAL SWELLING [None]
  - PROSTATE CANCER [None]
  - SLEEP DISORDER [None]
  - TREMOR [None]
  - VENTRICULAR EXTRASYSTOLES [None]
